FAERS Safety Report 15034392 (Version 1)
Quarter: 2018Q3

REPORT INFORMATION
  Report Type: Spontaneous
  Country: US (occurrence: US)
  Receive Date: 20180620
  Receipt Date: 20180620
  Transmission Date: 20181010
  Serious: No
  Sender: FDA-Public Use
  Company Number: US-TEVA-802833ACC

PATIENT
  Sex: Female

DRUGS (1)
  1. KETOCONAZOLE 2% CREAM [Suspect]
     Active Substance: KETOCONAZOLE
     Dosage: 2 PERCENT DAILY;
     Dates: start: 2017

REACTIONS (1)
  - Drug effect decreased [Unknown]
